FAERS Safety Report 6225246-1 (Version None)
Quarter: 2009Q2

REPORT INFORMATION
  Report Type: 
  Country: None (occurrence: None)
  Receive Date: 20090612
  Receipt Date: 20090410
  Transmission Date: 20091009
  Serious: No
  Sender: FDA-Public Use
  Company Number: US-ABBOTT-09P-163-0568104-00

PATIENT
  Sex: Female
  Weight: 79.45 kg

DRUGS (5)
  1. HUMIRA [Suspect]
     Indication: PSORIATIC ARTHROPATHY
     Route: 058
     Dates: start: 20081001
  2. METHOTREXATE [Concomitant]
     Indication: PSORIATIC ARTHROPATHY
  3. SIMBACORT [Concomitant]
     Indication: ASTHMA
  4. ALBUTEROL [Concomitant]
     Indication: ASTHMA
  5. PREDNISONE [Concomitant]
     Indication: ASTHMA

REACTIONS (5)
  - DRUG EFFECT DECREASED [None]
  - INJECTION SITE ERYTHEMA [None]
  - INJECTION SITE HAEMATOMA [None]
  - INJECTION SITE NODULE [None]
  - INJECTION SITE PRURITUS [None]
